FAERS Safety Report 7007127-9 (Version None)
Quarter: 2010Q3

REPORT INFORMATION
  Report Type: 
  Country: None (occurrence: None)
  Receive Date: 20100913
  Receipt Date: 20100831
  Transmission Date: 20110219
  Serious: No
  Sender: FDA-Public Use
  Company Number: B0673352A

PATIENT
  Age: 47 Year
  Sex: Female

DRUGS (2)
  1. BUPROPION HCL [Suspect]
     Indication: DEPRESSION
  2. VENLAFAXINE HCL [Suspect]
     Indication: DEPRESSION

REACTIONS (4)
  - DRUG LEVEL DECREASED [None]
  - DRUG LEVEL INCREASED [None]
  - POTENTIATING DRUG INTERACTION [None]
  - THERAPEUTIC RESPONSE DECREASED [None]
